FAERS Safety Report 21591446 (Version 1)
Quarter: 2022Q4

REPORT INFORMATION
  Report Type: Spontaneous
  Country: CN (occurrence: CN)
  Receive Date: 20221114
  Receipt Date: 20221114
  Transmission Date: 20230113
  Serious: Yes (Other)
  Sender: FDA-Public Use
  Company Number: CN-BoehringerIngelheim-2022-BI-201512

PATIENT
  Age: 32 Year
  Sex: Female
  Weight: 42.5 kg

DRUGS (1)
  1. PRAMIPEXOLE [Suspect]
     Active Substance: PRAMIPEXOLE
     Indication: Restless legs syndrome
     Route: 048
     Dates: start: 202109

REACTIONS (4)
  - Immunodeficiency [Unknown]
  - Pain in extremity [Unknown]
  - Insomnia [Unknown]
  - Withdrawal syndrome [Unknown]
